FAERS Safety Report 5223966-9 (Version None)
Quarter: 2007Q1

REPORT INFORMATION
  Report Type: 
  Country: None (occurrence: None)
  Receive Date: 20070130
  Receipt Date: 20070129
  Transmission Date: 20070707
  Serious: Yes (Death)
  Sender: FDA-Public Use
  Company Number: US-GLAXOSMITHKLINE-A0637469A

PATIENT
  Sex: Female

DRUGS (4)
  1. ADVAIR DISKUS 100/50 [Suspect]
     Indication: ASTHMA
     Route: 055
     Dates: end: 20041217
  2. DEPO-PROVERA [Suspect]
     Indication: CONTRACEPTION
     Route: 065
  3. NARCOTIC [Suspect]
     Indication: MIGRAINE
     Route: 065
     Dates: start: 20040408, end: 20041201
  4. UNKNOWN MEDICATION [Suspect]
     Indication: MIGRAINE
     Route: 065
     Dates: start: 20040408, end: 20041201

REACTIONS (4)
  - ASTHMA [None]
  - DEATH [None]
  - DRUG ABUSER [None]
  - MIGRAINE [None]
